FAERS Safety Report 9394884 (Version 1)
Quarter: 2013Q3

REPORT INFORMATION
  Report Type: Spontaneous
  Country: BR (occurrence: BR)
  Receive Date: 20130711
  Receipt Date: 20130711
  Transmission Date: 20140515
  Serious: Yes (Other)
  Sender: FDA-Public Use
  Company Number: BR-ASTRAZENECA-2013SE50608

PATIENT
  Age: 56 Year
  Sex: Female

DRUGS (8)
  1. ATENOLOL [Suspect]
     Indication: HYPERTENSION
     Dosage: GENERIC, 25 MG, DAILY
     Route: 065
     Dates: start: 2004, end: 2006
  2. ATENOLOL [Suspect]
     Indication: ARRHYTHMIA
     Dosage: GENERIC, 25 MG, DAILY
     Route: 065
     Dates: start: 2004, end: 2006
  3. ATENOLOL [Suspect]
     Indication: HYPERTENSION
     Dosage: GENERIC, 50 MG, TWO TIMES A DAY
     Route: 065
     Dates: start: 2006, end: 2010
  4. ATENOLOL [Suspect]
     Indication: ARRHYTHMIA
     Dosage: GENERIC, 50 MG, TWO TIMES A DAY
     Route: 065
     Dates: start: 2006, end: 2010
  5. ATENOLOL [Suspect]
     Indication: HYPERTENSION
     Dosage: GENERIC, 100 MG, DAILY
     Route: 065
     Dates: start: 2010, end: 2010
  6. ATENOLOL [Suspect]
     Indication: ARRHYTHMIA
     Dosage: GENERIC, 100 MG, DAILY
     Route: 065
     Dates: start: 2010, end: 2010
  7. ATENOLOL [Suspect]
     Indication: HYPERTENSION
     Route: 065
     Dates: start: 2010
  8. ATENOLOL [Suspect]
     Indication: ARRHYTHMIA
     Route: 065
     Dates: start: 2010

REACTIONS (4)
  - Blood pressure increased [Recovered/Resolved]
  - Arrhythmia [Recovered/Resolved]
  - Fatigue [Recovered/Resolved]
  - Off label use [Recovered/Resolved]
